FAERS Safety Report 8077097-3 (Version None)
Quarter: 2012Q1

REPORT INFORMATION
  Report Type: 
  Country: None (occurrence: None)
  Receive Date: 20120127
  Receipt Date: 20120123
  Transmission Date: 20120608
  Serious: Yes (Life-Threatening, Hospitalization, Other)
  Sender: FDA-Public Use
  Company Number: PHHO2009DE15332

PATIENT
  Sex: Female
  Weight: 68.9 kg

DRUGS (12)
  1. MARCUMAR [Suspect]
  2. PANTOPRAZOLE [Concomitant]
     Indication: PROPHYLAXIS
  3. VESICARE [Concomitant]
     Indication: POLLAKIURIA
  4. SILDENAFIL [Concomitant]
     Indication: PULMONARY ARTERIAL HYPERTENSION
  5. GLEEVEC [Interacting]
     Indication: PULMONARY ARTERIAL HYPERTENSION
     Dosage: DOUBLE BLIND
     Route: 048
     Dates: start: 20091126, end: 20091207
  6. HYDROCHLOROTHIAZIDE [Concomitant]
     Indication: PULMONARY ARTERIAL HYPERTENSION
  7. SITAXENTAN [Concomitant]
     Indication: PULMONARY ARTERIAL HYPERTENSION
  8. DIURETICS [Suspect]
  9. ANTICOAGULANTS [Concomitant]
  10. VALPROATE SODIUM [Concomitant]
     Indication: BLADDER DISORDER
  11. SPIRONOLACTONE [Concomitant]
     Indication: PULMONARY ARTERIAL HYPERTENSION
  12. TORSEMIDE [Concomitant]
     Indication: PULMONARY ARTERIAL HYPERTENSION

REACTIONS (19)
  - HYPOKALAEMIA [None]
  - SUBDURAL HAEMORRHAGE [None]
  - GENERAL PHYSICAL HEALTH DETERIORATION [None]
  - VOMITING [None]
  - ASTHENIA [None]
  - HYPONATRAEMIA [None]
  - HYPERVENTILATION [None]
  - DRUG INTERACTION [None]
  - FALL [None]
  - ELECTROLYTE IMBALANCE [None]
  - COAGULOPATHY [None]
  - PROTHROMBIN TIME SHORTENED [None]
  - HAEMATOMA [None]
  - HAEMATEMESIS [None]
  - METABOLIC ALKALOSIS [None]
  - RESPIRATORY ALKALOSIS [None]
  - INTERNATIONAL NORMALISED RATIO INCREASED [None]
  - OVERDOSE [None]
  - GASTROENTERITIS VIRAL [None]
